FAERS Safety Report 5521130-7 (Version None)
Quarter: 2007Q4

REPORT INFORMATION
  Report Type: 
  Country: None (occurrence: None)
  Receive Date: 20071119
  Receipt Date: 20070727
  Transmission Date: 20080405
  Serious: Yes (Other)
  Sender: FDA-Public Use
  Company Number: US-ASTRAZENECA-2007UW01566

PATIENT
  Age: 433 Month
  Sex: Male

DRUGS (3)
  1. SEROQUEL [Suspect]
     Indication: DEPRESSION
     Route: 048
     Dates: start: 20040301, end: 20051201
  2. SEROQUEL [Suspect]
     Indication: ANXIETY
     Route: 048
     Dates: start: 20040301, end: 20051201
  3. RISPERDAL [Suspect]
     Dates: start: 19971201, end: 20030801

REACTIONS (3)
  - DIABETES MELLITUS [None]
  - DIABETIC NEUROPATHY [None]
  - OBESITY [None]
